FAERS Safety Report 5197215-4 (Version None)
Quarter: 2006Q4

REPORT INFORMATION
  Report Type: 
  Country: None (occurrence: None)
  Receive Date: 20061227
  Receipt Date: 20061215
  Transmission Date: 20070319
  Serious: Yes (Disabling, Other)
  Sender: FDA-Public Use
  Company Number: 2003116105

PATIENT
  Age: 56 Year
  Sex: Female
  Weight: 50 kg

DRUGS (3)
  1. RELPAX [Suspect]
     Indication: MIGRAINE WITHOUT AURA
     Dosage: 80 MG (PRN),
     Dates: start: 20030101, end: 20031015
  2. HEPT-A-MYL (HEPTAMINOL HYDROCHLORIDE) [Concomitant]
     Indication: HYPOTENSION
     Dosage: 760 GRAM (QID), ORAL
     Route: 048
     Dates: start: 20031008, end: 20031026
  3. GINKO BILOBA (GINKGO BILOBA) [Suspect]
     Dosage: ORAL
     Route: 048
     Dates: start: 20031011, end: 20031102

REACTIONS (48)
  - ABASIA [None]
  - ABNORMAL BEHAVIOUR [None]
  - AFFECTIVE DISORDER [None]
  - AGEUSIA [None]
  - AGGRESSION [None]
  - ANXIETY [None]
  - APHASIA [None]
  - ASTHENIA [None]
  - BALANCE DISORDER [None]
  - CEREBRAL ISCHAEMIA [None]
  - CEREBROVASCULAR ACCIDENT [None]
  - CEREBROVASCULAR SPASM [None]
  - CLUMSINESS [None]
  - CONFUSIONAL STATE [None]
  - CONTUSION [None]
  - DECREASED ACTIVITY [None]
  - DEPRESSED MOOD [None]
  - DIARRHOEA [None]
  - DISORIENTATION [None]
  - DISTURBANCE IN ATTENTION [None]
  - DRUG ADMINISTRATION ERROR [None]
  - DRUG INEFFECTIVE [None]
  - DYSARTHRIA [None]
  - DYSGRAPHIA [None]
  - DYSPNOEA [None]
  - EXTENSOR PLANTAR RESPONSE [None]
  - FACE INJURY [None]
  - FACIAL PALSY [None]
  - FALL [None]
  - FATIGUE [None]
  - GAIT DISTURBANCE [None]
  - HYPOTENSION [None]
  - INSOMNIA [None]
  - IRRITABILITY [None]
  - MEMORY IMPAIRMENT [None]
  - MIGRAINE [None]
  - MIGRAINE WITHOUT AURA [None]
  - MOTOR DYSFUNCTION [None]
  - MYALGIA [None]
  - NAUSEA [None]
  - OEDEMA GENITAL [None]
  - SOMNOLENCE [None]
  - TINNITUS [None]
  - TOOTH FRACTURE [None]
  - TRANSIENT ISCHAEMIC ATTACK [None]
  - VASOCONSTRICTION [None]
  - VASOSPASM [None]
  - WEIGHT INCREASED [None]
